FAERS Safety Report 7573849-4 (Version None)
Quarter: 2011Q2

REPORT INFORMATION
  Report Type: 
  Country: None (occurrence: None)
  Receive Date: 20110627
  Receipt Date: 20110620
  Transmission Date: 20111010
  Serious: Yes (Hospitalization)
  Sender: FDA-Public Use
  Company Number: A0930386A

PATIENT
  Age: 66 Year
  Sex: Female

DRUGS (4)
  1. VITAMIN B COMPLEX CAP [Concomitant]
  2. ADVAIR DISKUS 100/50 [Suspect]
     Dosage: 1PUFF TWICE PER DAY
     Route: 055
     Dates: start: 20080101
  3. ASCORBIC ACID [Concomitant]
  4. PROTONIX [Concomitant]

REACTIONS (7)
  - OFF LABEL USE [None]
  - PNEUMONIA [None]
  - OESOPHAGEAL CANDIDIASIS [None]
  - OESOPHAGITIS [None]
  - DYSPNOEA [None]
  - CHEST PAIN [None]
  - CANDIDIASIS [None]
